FAERS Safety Report 7031957-0 (Version None)
Quarter: 2010Q4

REPORT INFORMATION
  Report Type: 
  Country: None (occurrence: None)
  Receive Date: 20101001
  Receipt Date: 20100917
  Transmission Date: 20110411
  Serious: Yes (Hospitalization)
  Sender: FDA-Public Use
  Company Number: 016791

PATIENT
  Sex: Female
  Weight: 52.8 kg

DRUGS (8)
  1. CERTOLIZUMAB PEGOL (CERTOLIZUMAB PEGOL) [Suspect]
     Indication: RHEUMATOID ARTHRITIS
     Dosage: (400 MG 1X/4 WEEKS SUBCUTANEOUS)
     Route: 058
     Dates: start: 20100421
  2. METHOTREXATE [Suspect]
     Indication: RHEUMATOID ARTHRITIS
     Dosage: (6 MG (4MG - 2MG) /WEEK ORAL)
     Route: 048
     Dates: start: 20090613
  3. PREDNISOLONE [Suspect]
     Indication: RHEUMATOID ARTHRITIS
     Dosage: (2.5 MG ORAL)
     Route: 048
     Dates: start: 19981218
  4. FELBINAC [Concomitant]
  5. ETODOLAC [Concomitant]
  6. SOFALCONE [Concomitant]
  7. ISONIAZID [Concomitant]
  8. KETOPROFEN [Concomitant]

REACTIONS (8)
  - BLOOD PRESSURE INCREASED [None]
  - CEREBELLAR ATROPHY [None]
  - CEREBROVASCULAR SPASM [None]
  - HYDROCEPHALUS [None]
  - MENINGITIS [None]
  - RUPTURED CEREBRAL ANEURYSM [None]
  - SUBARACHNOID HAEMORRHAGE [None]
  - VASOSPASM [None]
